FAERS Safety Report 20980289 (Version 1)
Quarter: 2022Q2

REPORT INFORMATION
  Report Type: Report from Study
  Country: US (occurrence: US)
  Receive Date: 20220620
  Receipt Date: 20220620
  Transmission Date: 20220721
  Serious: Yes (Hospitalization, Disabling, Other)
  Sender: FDA-Public Use
  Company Number: US-SA-2018SA204755

PATIENT
  Age: 66 Year
  Sex: Female

DRUGS (3)
  1. ALEMTUZUMAB [Suspect]
     Active Substance: ALEMTUZUMAB
     Indication: Multiple sclerosis
     Dosage: 12 MG, QD
     Route: 041
     Dates: start: 20180709, end: 20180711
  2. ALEMTUZUMAB [Suspect]
     Active Substance: ALEMTUZUMAB
     Dosage: 12 MG, QD
     Route: 041
     Dates: start: 20170626, end: 20170630
  3. BACLOFEN [Concomitant]
     Active Substance: BACLOFEN
     Dosage: UNK
     Route: 065

REACTIONS (15)
  - Immune thrombocytopenia [Unknown]
  - Skull fracture [Unknown]
  - Craniocerebral injury [Not Recovered/Not Resolved]
  - Brain oedema [Not Recovered/Not Resolved]
  - Fall [Recovered/Resolved]
  - Somnolence [Not Recovered/Not Resolved]
  - Walking aid user [Recovered/Resolved]
  - Balance disorder [Recovered/Resolved]
  - Head injury [Recovered/Resolved]
  - Hospitalisation [Recovered/Resolved]
  - Anaemia [Unknown]
  - Mobility decreased [Unknown]
  - Memory impairment [Unknown]
  - Dysarthria [Not Recovered/Not Resolved]
  - Urinary tract infection [Recovered/Resolved]

NARRATIVE: CASE EVENT DATE: 20190201
